FAERS Safety Report 9969109 (Version 1)
Quarter: 2014Q1

REPORT INFORMATION
  Report Type: Report from Study
  Country: US (occurrence: US)
  Receive Date: 20140306
  Receipt Date: 20140306
  Transmission Date: 20141002
  Serious: Yes (Other)
  Sender: FDA-Public Use
  Company Number: US-ABBVIE-13P-163-1141797-00

PATIENT
  Age: 64 Year
  Sex: Female

DRUGS (12)
  1. HUMIRA [Suspect]
     Indication: CROHN^S DISEASE
     Route: 058
  2. ASACOL [Concomitant]
     Indication: CROHN^S DISEASE
  3. FOLIC ACID [Concomitant]
     Indication: CROHN^S DISEASE
  4. BENICAR HCT [Concomitant]
     Indication: HYPERTENSION
     Dosage: 40-25MG DAILY
  5. ATENOLOL [Concomitant]
     Indication: HYPERTENSION
  6. OMEPRAZOLE [Concomitant]
     Indication: DYSPEPSIA
  7. CORTIZONE [Concomitant]
     Indication: PRODUCT USED FOR UNKNOWN INDICATION
  8. CALCIUM + VITAMIN D [Concomitant]
     Indication: PRODUCT USED FOR UNKNOWN INDICATION
  9. FISH OIL [Concomitant]
     Indication: PRODUCT USED FOR UNKNOWN INDICATION
  10. GLUCOSAMINE + CHONDROITIN [Concomitant]
     Indication: PRODUCT USED FOR UNKNOWN INDICATION
  11. FIBER [Concomitant]
     Indication: PRODUCT USED FOR UNKNOWN INDICATION
  12. SLEEP AID [Concomitant]
     Indication: INSOMNIA

REACTIONS (3)
  - Fall [Unknown]
  - Wrist fracture [Recovering/Resolving]
  - Laceration [Unknown]
